FAERS Safety Report 23740409 (Version 1)
Quarter: 2024Q2

REPORT INFORMATION
  Report Type: Report from Study
  Country: US (occurrence: US)
  Receive Date: 20240415
  Receipt Date: 20240415
  Transmission Date: 20240716
  Serious: Yes (Other)
  Sender: FDA-Public Use
  Company Number: US-ABBVIE-5713852

PATIENT
  Age: 62 Year
  Sex: Female

DRUGS (1)
  1. HUMIRA [Suspect]
     Active Substance: ADALIMUMAB
     Indication: Rheumatoid arthritis
     Dosage: FORM STRENGTH: 40 MILLIGRAM
     Route: 058
     Dates: start: 20230901

REACTIONS (13)
  - Medical device removal [Recovered/Resolved]
  - Rheumatoid arthritis [Recovering/Resolving]
  - Bone lesion [Recovering/Resolving]
  - Joint lock [Unknown]
  - Headache [Unknown]
  - Post procedural inflammation [Unknown]
  - Post procedural swelling [Unknown]
  - Back disorder [Unknown]
  - Post procedural discomfort [Unknown]
  - Pain [Unknown]
  - Neck pain [Unknown]
  - Myalgia [Unknown]
  - Ankle fracture [Unknown]

NARRATIVE: CASE EVENT DATE: 20231019
